FAERS Safety Report 16182917 (Version 1)
Quarter: 2019Q2

REPORT INFORMATION
  Report Type: Spontaneous
  Country: IT (occurrence: IT)
  Receive Date: 20190411
  Receipt Date: 20190411
  Transmission Date: 20190711
  Serious: Yes (Other)
  Sender: FDA-Public Use
  Company Number: IT-ACCORD-120463

PATIENT
  Age: 53 Year
  Sex: Female

DRUGS (1)
  1. MYCOPHENOLATE MOFETIL ACCORD [Suspect]
     Active Substance: MYCOPHENOLATE MOFETIL
     Indication: VASCULITIS
     Dosage: ALSO RECEIVED 2 DOSAGE FORM.
     Route: 048
     Dates: start: 20180621, end: 20180731

REACTIONS (3)
  - Off label use [Unknown]
  - Urticarial vasculitis [Not Recovered/Not Resolved]
  - Drug ineffective [Unknown]
